FAERS Safety Report 5762979-5 (Version None)
Quarter: 2008Q2

REPORT INFORMATION
  Report Type: 
  Country: None (occurrence: None)
  Receive Date: 20080609
  Receipt Date: 20080603
  Transmission Date: 20081010
  Serious: Yes (Other)
  Sender: FDA-Public Use
  Company Number: GB-PFIZER INC-2008045332

PATIENT
  Sex: Female
  Weight: 59 kg

DRUGS (6)
  1. SALAZOPYRIN [Suspect]
     Indication: ARTHRITIS
     Route: 048
     Dates: start: 20080313, end: 20080513
  2. SALAZOPYRIN [Suspect]
     Indication: PSORIATIC ARTHROPATHY
  3. MICROGYNON [Interacting]
     Route: 048
  4. ALL OTHER THERAPEUTIC PRODUCTS [Interacting]
     Route: 048
  5. OMEGA 3 [Concomitant]
  6. DICLOFENAC SODIUM [Concomitant]
     Route: 048
     Dates: start: 20080109

REACTIONS (6)
  - ARTHRALGIA [None]
  - ARTHRITIS [None]
  - DRUG INTERACTION [None]
  - MENSTRUAL DISORDER [None]
  - PAIN [None]
  - PAIN IN EXTREMITY [None]
